FAERS Safety Report 9471699 (Version 5)
Quarter: 2014Q1

REPORT INFORMATION
  Report Type: Spontaneous
  Country: GB (occurrence: None)
  Receive Date: 20130819
  Receipt Date: 20140203
  Transmission Date: 20141002
  Serious: Yes (Hospitalization, Other)
  Sender: FDA-Public Use
  Company Number: KAD201308-001025

PATIENT
  Age: 58 Year
  Sex: Female

DRUGS (3)
  1. RIBAVIRIN (RIBAVIRIN) [Suspect]
     Indication: HEPATITIS C
     Dosage: TABLET, TWICE DAILY, ORAL
     Route: 048
     Dates: start: 20121014
  2. TELAPREVIR (TELAPREVIR) [Suspect]
     Indication: HEPATITIS C
     Route: 048
     Dates: start: 20121014, end: 20130102
  3. PEGINTERFERON ALFA-2B (PEGINTERFERON ALFA-2B) [Suspect]
     Indication: HEPATITIS C
     Dosage: INJECTION, 1 DF, WEEKLY
     Route: 058
     Dates: start: 20121014

REACTIONS (16)
  - Anaemia [None]
  - Epistaxis [None]
  - Eczema [None]
  - Anxiety [None]
  - Dehydration [None]
  - Pyrexia [None]
  - Platelet count decreased [None]
  - Nausea [None]
  - Palpitations [None]
  - Rash [None]
  - Rectal haemorrhage [None]
  - Dysphagia [None]
  - Hypophagia [None]
  - Malaise [None]
  - Mouth ulceration [None]
  - Haemoglobin decreased [None]
